FAERS Safety Report 21093329 (Version 5)
Quarter: 2024Q4

REPORT INFORMATION
  Report Type: Spontaneous
  Country: KR (occurrence: KR)
  Receive Date: 20220718
  Receipt Date: 20241203
  Transmission Date: 20250114
  Serious: Yes (Hospitalization, Other)
  Sender: BRISTOL-MYERS SQUIBB COMPANY
  Company Number: KR-CELGENE-KOR-20210500249

PATIENT
  Age: 57 Year
  Sex: Male

DRUGS (39)
  1. POMALYST [Suspect]
     Active Substance: POMALIDOMIDE
     Indication: Plasma cell myeloma refractory
     Dosage: DAYS 1-21 OF 28 DAY CYCLE
     Route: 048
     Dates: start: 20210420, end: 20210425
  2. POMALYST [Suspect]
     Active Substance: POMALIDOMIDE
     Dosage: FREQUENCY TEXT: NOT PROVIDED
     Route: 048
     Dates: start: 20210510
  3. POMALYST [Suspect]
     Active Substance: POMALIDOMIDE
     Dates: start: 20210518, end: 20210607
  4. POMALYST [Suspect]
     Active Substance: POMALIDOMIDE
     Dates: start: 20220809
  5. POMALYST [Suspect]
     Active Substance: POMALIDOMIDE
     Dosage: DAYS 1-21 OF 28 DAY CYCLE
     Route: 048
     Dates: start: 20210518, end: 20210607
  6. POMALYST [Suspect]
     Active Substance: POMALIDOMIDE
     Dosage: DAYS 1-21 OF 28 DAY CYCLE
     Route: 048
     Dates: start: 20220908
  7. DEXAMETHASONE [Suspect]
     Active Substance: DEXAMETHASONE
     Indication: Plasma cell myeloma
     Dosage: FREQUENCY TEXT: DAYS 1,8,15 AND 22 OF 28 DAYS CYCLE
     Route: 048
     Dates: start: 20210420, end: 20210427
  8. DEXAMETHASONE [Suspect]
     Active Substance: DEXAMETHASONE
     Dosage: DOSE WAS CHANGED TO AN UNKNOWN DOSE. FREQUENCY TEXT: NOT PROVIDED
     Dates: start: 20210511
  9. DEXAMETHASONE [Suspect]
     Active Substance: DEXAMETHASONE
     Dates: start: 20210518, end: 20210608
  10. DEXAMETHASONE [Suspect]
     Active Substance: DEXAMETHASONE
     Dates: start: 20220809
  11. DEXAMETHASONE [Suspect]
     Active Substance: DEXAMETHASONE
     Dosage: DAYS 1, 8, 15 AND 22 OF 28 DAY CYCLE
     Route: 048
     Dates: start: 20220908, end: 20220915
  12. BELANTAMAB MAFODOTIN [Suspect]
     Active Substance: BELANTAMAB MAFODOTIN
     Indication: Plasma cell myeloma refractory
     Dosage: FREQUENCY TEXT Q4WK, DAY 1 OF 28 DAYS
     Route: 042
     Dates: start: 20210420
  13. BELANTAMAB MAFODOTIN [Suspect]
     Active Substance: BELANTAMAB MAFODOTIN
     Dosage: ON 18 MAY 2021 14:26, DAY 1 OF 28 DAYS CYCLE
     Route: 042
     Dates: start: 20210518
  14. BELANTAMAB MAFODOTIN [Suspect]
     Active Substance: BELANTAMAB MAFODOTIN
     Dosage: ON 18 MAY 2021 14:26, DAY 1 OF 28 DAYS CYCLE
     Route: 042
     Dates: start: 20210518, end: 20210518
  15. FAMOTIDINE [Concomitant]
     Active Substance: FAMOTIDINE
     Indication: Product used for unknown indication
     Dates: start: 20210218, end: 20210922
  16. FAMOTIDINE [Concomitant]
     Active Substance: FAMOTIDINE
  17. FAMOTIDINE [Concomitant]
     Active Substance: FAMOTIDINE
  18. FAMOTIDINE [Concomitant]
     Active Substance: FAMOTIDINE
     Dosage: FREQUENCY TEXT: NOT PROVIDED
     Dates: start: 20210218, end: 20210922
  19. FAMOTIDINE [Concomitant]
     Active Substance: FAMOTIDINE
  20. PREGABALIN [Concomitant]
     Active Substance: PREGABALIN
     Indication: Product used for unknown indication
     Dates: start: 20201012, end: 20210503
  21. PREGABALIN [Concomitant]
     Active Substance: PREGABALIN
  22. PREGABALIN [Concomitant]
     Active Substance: PREGABALIN
  23. PREGABALIN [Concomitant]
     Active Substance: PREGABALIN
     Dosage: FREQUENCY TEXT: NOT PROVIDED
     Dates: start: 20201012, end: 20210303
  24. PREGABALIN [Concomitant]
     Active Substance: PREGABALIN
  25. ACETAMINOPHEN [Concomitant]
     Active Substance: ACETAMINOPHEN
     Indication: Product used for unknown indication
     Dosage: FREQUENCY TEXT: NOT PROVIDED
     Dates: start: 20210420, end: 20210425
  26. CEFPODOXIME [Concomitant]
     Active Substance: CEFPODOXIME
     Indication: Product used for unknown indication
  27. CEFPODOXIME [Concomitant]
     Active Substance: CEFPODOXIME
  28. CEFPODOXIME [Concomitant]
     Active Substance: CEFPODOXIME
     Dosage: FREQUENCY TEXT: NOT PROVIDED
     Dates: start: 20210423, end: 20210425
  29. CEFPODOXIME [Concomitant]
     Active Substance: CEFPODOXIME
  30. DABIGATRAN ETEXILATE [Concomitant]
     Active Substance: DABIGATRAN ETEXILATE
     Indication: Product used for unknown indication
     Dates: start: 20210218, end: 20210922
  31. DABIGATRAN ETEXILATE [Concomitant]
     Active Substance: DABIGATRAN ETEXILATE
     Dosage: FREQUENCY TEXT: NOT PROVIDED
     Dates: start: 20210218, end: 20210426
  32. PREDNISOLONE [Concomitant]
     Active Substance: PREDNISOLONE
     Indication: Product used for unknown indication
  33. PREDNISOLONE [Concomitant]
     Active Substance: PREDNISOLONE
     Dosage: FREQUENCY TEXT: NOT PROVIDED
     Dates: start: 20200903, end: 20210922
  34. PREDNISOLONE [Concomitant]
     Active Substance: PREDNISOLONE
  35. ASPIRIN [Concomitant]
     Active Substance: ASPIRIN
     Indication: Product used for unknown indication
     Dosage: FREQUENCY TEXT: NOT PROVIDED
     Dates: start: 20201012, end: 20210303
  36. MEPERIDINE [Concomitant]
     Active Substance: MEPERIDINE
     Indication: Pain
     Route: 041
     Dates: start: 20220706, end: 20220706
  37. MEPERIDINE [Concomitant]
     Active Substance: MEPERIDINE
     Dates: start: 20210326
  38. VENITOL [Concomitant]
     Indication: Intermittent claudication
     Dosage: 1 TAB BID, ORAL
     Route: 048
     Dates: start: 20220509, end: 20220703
  39. ENTELON [Concomitant]
     Indication: Intermittent claudication
     Dosage: 150 MG BID, ORAL
     Route: 048
     Dates: start: 20220509, end: 20220703

REACTIONS (3)
  - Traumatic subarachnoid haemorrhage [Recovered/Resolved]
  - Neutropenia [Recovered/Resolved]
  - Platelet count decreased [Recovered/Resolved]

NARRATIVE: CASE EVENT DATE: 20210425
